FAERS Safety Report 10189014 (Version 1)
Quarter: 2014Q2

REPORT INFORMATION
  Report Type: Spontaneous
  Country: US (occurrence: None)
  Receive Date: 20140521
  Receipt Date: 20140521
  Transmission Date: 20141212
  Serious: No
  Sender: FDA-Public Use
  Company Number: None

PATIENT
  Age: 36 Year
  Sex: Female
  Weight: 47.63 kg

DRUGS (1)
  1. BOTOX [Suspect]
     Indication: SKIN WRINKLING
     Dates: start: 20140414, end: 20140501

REACTIONS (7)
  - Injection site swelling [None]
  - Nausea [None]
  - Vision blurred [None]
  - Headache [None]
  - Injection site pain [None]
  - Product substitution issue [None]
  - Product quality issue [None]
